FAERS Safety Report 7326497-5 (Version None)
Quarter: 2011Q1

REPORT INFORMATION
  Report Type: 
  Country: None (occurrence: None)
  Receive Date: 20110302
  Receipt Date: 20110218
  Transmission Date: 20110831
  Serious: Yes (Other)
  Sender: FDA-Public Use
  Company Number: US-SANOFI-AVENTIS-2011SA011598

PATIENT
  Age: 75 Year
  Sex: Male

DRUGS (6)
  1. ATENOLOL [Concomitant]
  2. CRESTOR [Concomitant]
  3. XANAX [Concomitant]
  4. PLAVIX [Suspect]
     Indication: STENT PLACEMENT
     Route: 048
     Dates: start: 20110201
  5. HYDROCODONE BITARTRATE [Concomitant]
  6. PREDNISONE TAB [Concomitant]

REACTIONS (4)
  - MENTAL STATUS CHANGES [None]
  - SOMNOLENCE [None]
  - ASTHENIA [None]
  - HALLUCINATION [None]
